FAERS Safety Report 25407720 (Version 1)
Quarter: 2025Q2

REPORT INFORMATION
  Report Type: Spontaneous
  Country: CN (occurrence: CN)
  Receive Date: 20250606
  Receipt Date: 20250606
  Transmission Date: 20250717
  Serious: Yes (Other)
  Sender: Kenvue
  Company Number: CN-KENVUE-20250600606

PATIENT

DRUGS (1)
  1. CHILDRENS MOTRIN [Suspect]
     Active Substance: IBUPROFEN
     Indication: Pyrexia
     Dosage: 10 MILLILITER, TWICE A DAY
     Route: 048
     Dates: start: 20250525

REACTIONS (2)
  - Blood pressure decreased [Recovered/Resolved]
  - Off label use [Unknown]

NARRATIVE: CASE EVENT DATE: 20250525
